FAERS Safety Report 20851237 (Version 1)
Quarter: 2022Q2

REPORT INFORMATION
  Report Type: Report from Study
  Country: US (occurrence: US)
  Receive Date: 20220519
  Receipt Date: 20220519
  Transmission Date: 20220721
  Serious: Yes (Hospitalization, Other)
  Sender: FDA-Public Use
  Company Number: US-BAUSCH-BL-2021-032891

PATIENT
  Age: 57 Year
  Sex: Male

DRUGS (2)
  1. XIFAXAN [Suspect]
     Active Substance: RIFAXIMIN
     Indication: Hepatic encephalopathy
     Dosage: SINCE 4 YEARS
     Route: 048
  2. XIFAXAN [Suspect]
     Active Substance: RIFAXIMIN
     Route: 048

REACTIONS (9)
  - Cerebrovascular accident [Recovered/Resolved]
  - Ammonia increased [Recovered/Resolved]
  - Fall [Unknown]
  - Loss of consciousness [Unknown]
  - Cerebral haemorrhage [Unknown]
  - Spinal fracture [Unknown]
  - Blood pressure decreased [Unknown]
  - Non-24-hour sleep-wake disorder [Unknown]
  - Product dose omission issue [Unknown]

NARRATIVE: CASE EVENT DATE: 20210101
